FAERS Safety Report 12103092 (Version 1)
Quarter: 2016Q1

REPORT INFORMATION
  Report Type: Other
  Country: DE (occurrence: DE)
  Receive Date: 20160222
  Receipt Date: 20160222
  Transmission Date: 20160526
  Serious: Yes (Other)
  Sender: FDA-Public Use
  Company Number: DE-MYLANLABS-2016M1006327

PATIENT

DRUGS (1)
  1. AZATHIOPRINE MYLAN [Suspect]
     Active Substance: AZATHIOPRINE
     Dosage: 25 MG, UNK

REACTIONS (8)
  - Feeling cold [Recovered/Resolved]
  - Haematemesis [Recovered/Resolved]
  - Pyrexia [Recovered/Resolved]
  - Nausea [Recovered/Resolved]
  - Vomiting [Recovered/Resolved]
  - Diarrhoea [Recovered/Resolved]
  - Hyperhidrosis [Recovered/Resolved]
  - Muscle spasms [Recovered/Resolved]
